FAERS Safety Report 20355820 (Version 15)
Quarter: 2025Q2

REPORT INFORMATION
  Report Type: Report from Study
  Country: US (occurrence: US)
  Receive Date: 20220120
  Receipt Date: 20250501
  Transmission Date: 20250716
  Serious: Yes (Other)
  Sender: TAKEDA
  Company Number: US-TAKEDA-2021TUS054159

PATIENT
  Age: 5 Year
  Sex: Male
  Weight: 15 kg

DRUGS (12)
  1. HUMAN IMMUNOGLOBULIN G [Suspect]
     Active Substance: HUMAN IMMUNOGLOBULIN G
     Indication: Immune system disorder
     Dosage: 100 MILLIGRAM/KILOGRAM, 1/WEEK
     Dates: start: 20210827
  2. HUMAN IMMUNOGLOBULIN G [Suspect]
     Active Substance: HUMAN IMMUNOGLOBULIN G
     Indication: Hypergammaglobulinaemia
     Dosage: 2 GRAM, 1/WEEK
  3. HUMAN IMMUNOGLOBULIN G [Suspect]
     Active Substance: HUMAN IMMUNOGLOBULIN G
     Dosage: 100 MILLIGRAM/KILOGRAM, 1/WEEK
  4. BENADRYL [Suspect]
     Active Substance: DIPHENHYDRAMINE HYDROCHLORIDE
     Indication: Product used for unknown indication
  5. DIPHENHYDRAMINE [Concomitant]
     Active Substance: DIPHENHYDRAMINE
  6. ALBUTEROL SULFATE [Concomitant]
     Active Substance: ALBUTEROL SULFATE
  7. EPINEPHRINE [Concomitant]
     Active Substance: EPINEPHRINE
  8. ACETAMINOPHEN [Concomitant]
     Active Substance: ACETAMINOPHEN
  9. AZELASTINE HYDROCHLORIDE\FLUTICASONE PROPIONATE [Concomitant]
     Active Substance: AZELASTINE HYDROCHLORIDE\FLUTICASONE PROPIONATE
  10. FLONASE SENSIMIST ALLERGY RELIEF [Concomitant]
     Active Substance: FLUTICASONE FUROATE
  11. Lmx [Concomitant]
  12. VITAMINS [Concomitant]
     Active Substance: VITAMINS

REACTIONS (14)
  - Croup infectious [Unknown]
  - Viral infection [Unknown]
  - Nasopharyngitis [Unknown]
  - Gastritis [Not Recovered/Not Resolved]
  - Seasonal allergy [Unknown]
  - Lymphadenitis [Unknown]
  - Infection [Unknown]
  - Accidental overdose [Unknown]
  - Cellulitis [Unknown]
  - Product dose omission issue [Unknown]
  - COVID-19 [Recovered/Resolved]
  - Illness [Unknown]
  - Upper respiratory tract infection [Unknown]
  - Sinusitis [Unknown]

NARRATIVE: CASE EVENT DATE: 20220923
